FAERS Safety Report 8250914-X (Version None)
Quarter: 2012Q1

REPORT INFORMATION
  Report Type: 
  Country: None (occurrence: None)
  Receive Date: 20120328
  Receipt Date: 20120316
  Transmission Date: 20120608
  Serious: Yes (Other)
  Sender: FDA-Public Use
  Company Number: USA/USA/12/0023539

PATIENT
  Age: 49 Year
  Sex: Female
  Weight: 72.5755 kg

DRUGS (4)
  1. TAXOL [Concomitant]
  2. FONDAPARINUX SODIUM [Suspect]
     Indication: DEEP VEIN THROMBOSIS
     Dosage: 7.5 MG, 1 IN 1 D, SUBCUTANEOUS
     Route: 058
     Dates: start: 20120125
  3. GEMZAR [Concomitant]
  4. FASLODEX (ANASTROZOLE) [Concomitant]

REACTIONS (4)
  - DISEASE RECURRENCE [None]
  - SYRINGE ISSUE [None]
  - DEEP VEIN THROMBOSIS [None]
  - UNDERDOSE [None]
